FAERS Safety Report 18594785 (Version 1)
Quarter: 2020Q4

REPORT INFORMATION
  Report Type: Spontaneous
  Country: US (occurrence: US)
  Receive Date: 20201208
  Receipt Date: 20201208
  Transmission Date: 20210114
  Serious: No
  Sender: FDA-Public Use
  Company Number: None

PATIENT
  Age: 70 Year
  Sex: Male

DRUGS (2)
  1. FONDAPARINUX SODIUM SYR [Suspect]
     Active Substance: FONDAPARINUX SODIUM
     Indication: DEEP VEIN THROMBOSIS
     Route: 058
     Dates: start: 20201001, end: 20201201
  2. ARIXTRA [Suspect]
     Active Substance: FONDAPARINUX SODIUM

REACTIONS (2)
  - Thrombosis [None]
  - Device defective [None]

NARRATIVE: CASE EVENT DATE: 20201030
